FAERS Safety Report 15155235 (Version 1)
Quarter: 2018Q3

REPORT INFORMATION
  Report Type: Spontaneous
  Country: IT (occurrence: IT)
  Receive Date: 20180717
  Receipt Date: 20180717
  Transmission Date: 20181010
  Serious: Yes (Death)
  Sender: FDA-Public Use
  Company Number: IT-SAKK-2018SA182330AA

PATIENT
  Age: 15 Year
  Sex: Male
  Weight: 80 kg

DRUGS (1)
  1. CLEXANE [Suspect]
     Active Substance: ENOXAPARIN SODIUM
     Indication: THROMBOSIS PROPHYLAXIS
     Dosage: 4000 KIU, QD
     Route: 058
     Dates: start: 20170526, end: 20170705

REACTIONS (4)
  - Cardiac arrest [Fatal]
  - Chest pain [Fatal]
  - Dyspnoea [Fatal]
  - Tachycardia [Fatal]

NARRATIVE: CASE EVENT DATE: 20170705
